FAERS Safety Report 10045171 (Version 1)
Quarter: 2014Q1

REPORT INFORMATION
  Report Type: Report from Study
  Country: US (occurrence: US)
  Receive Date: 20140328
  Receipt Date: 20140328
  Transmission Date: 20141002
  Serious: Yes (Death)
  Sender: FDA-Public Use
  Company Number: US-ASTRAZENECA-2014SE21102

PATIENT
  Age: 52 Year
  Sex: Male

DRUGS (4)
  1. NEXIUM [Suspect]
     Route: 048
     Dates: end: 201403
  2. CRESTOR [Suspect]
     Route: 048
     Dates: end: 201403
  3. NEURONTIN [Concomitant]
     Route: 048
  4. MIRAPEX [Concomitant]
     Route: 048

REACTIONS (1)
  - Death [Fatal]
